FAERS Safety Report 6641553-2 (Version None)
Quarter: 2010Q1

REPORT INFORMATION
  Report Type: 
  Country: None (occurrence: None)
  Receive Date: 20100317
  Receipt Date: 20100317
  Transmission Date: 20100710
  Serious: Yes (Hospitalization)
  Sender: FDA-Public Use
  Company Number: None

PATIENT
  Age: 34 Year
  Sex: Female
  Weight: 125 kg

DRUGS (10)
  1. CARBAMAZEPINE [Suspect]
     Indication: CONVULSION
     Dosage: 200 MG BID PO USING AS OUTPATIENT
     Route: 048
  2. HEPARIN [Concomitant]
  3. APAP TAB [Concomitant]
  4. ASP [Concomitant]
  5. GABAPENTIN [Concomitant]
  6. IBUPROFEN [Concomitant]
  7. LISINOPRIL [Concomitant]
  8. LORAZEPAM [Concomitant]
  9. POTASSIUM CHLORIDE [Concomitant]
  10. RISPERIDONE [Concomitant]

REACTIONS (4)
  - CONVULSION [None]
  - MENTAL STATUS CHANGES [None]
  - SOMNOLENCE [None]
  - THERAPEUTIC AGENT TOXICITY [None]
